FAERS Safety Report 8104465-3 (Version None)
Quarter: 2012Q1

REPORT INFORMATION
  Report Type: 
  Country: None (occurrence: None)
  Receive Date: 20120201
  Receipt Date: 20120127
  Transmission Date: 20120608
  Serious: Yes (Hospitalization)
  Sender: FDA-Public Use
  Company Number: GB-PFIZER INC-2010119965

PATIENT
  Age: 57 Year
  Sex: Female

DRUGS (2)
  1. RAMIPRIL [Suspect]
     Indication: HYPERTENSION
     Dosage: 2.5 MG, 1X/DAY
     Route: 048
     Dates: start: 20100113, end: 20100113
  2. PAROXETINE [Concomitant]
     Indication: ANXIETY
     Dosage: 20 MG, 1X/DAY
     Route: 048

REACTIONS (3)
  - RASH [None]
  - SWOLLEN TONGUE [None]
  - DYSPHAGIA [None]
